FAERS Safety Report 24824646 (Version 4)
Quarter: 2025Q2

REPORT INFORMATION
  Report Type: Report from Study
  Country: US (occurrence: US)
  Receive Date: 20250109
  Receipt Date: 20250516
  Transmission Date: 20250716
  Serious: No
  Sender: SUNOVION
  Company Number: US-SMPA-2024SPA006716AA

PATIENT

DRUGS (2)
  1. ORGOVYX [Suspect]
     Active Substance: RELUGOLIX
     Indication: Prostate cancer
     Route: 048
     Dates: start: 20241206, end: 20241206
  2. ORGOVYX [Suspect]
     Active Substance: RELUGOLIX
     Dosage: 120 MG, QD
     Route: 048
     Dates: start: 20241207

REACTIONS (6)
  - Illness [Unknown]
  - Influenza [Recovering/Resolving]
  - Conjunctivitis [Unknown]
  - Vomiting [Unknown]
  - Hot flush [Recovering/Resolving]
  - Headache [Unknown]
